FAERS Safety Report 20791744 (Version 2)
Quarter: 2022Q2

REPORT INFORMATION
  Report Type: Spontaneous
  Country: SG (occurrence: SG)
  Receive Date: 20220505
  Receipt Date: 20220518
  Transmission Date: 20220720
  Serious: Yes (Hospitalization, Other)
  Sender: FDA-Public Use
  Company Number: SG-TEVA-2022-SG-2033088

PATIENT
  Age: 88 Year
  Sex: Female

DRUGS (8)
  1. FLUOROURACIL [Suspect]
     Active Substance: FLUOROURACIL
     Indication: Procoagulant therapy
     Dosage: 50MG/ML, 0.5 ML
     Route: 065
  2. CHLORAMPHENICOL [Suspect]
     Active Substance: CHLORAMPHENICOL
     Indication: Antibiotic prophylaxis
     Route: 061
  3. MITOMYCIN C [Suspect]
     Active Substance: MITOMYCIN
     Indication: Antibiotic prophylaxis
     Dosage: 0.3MG/ML, 0.1 ML
     Route: 065
  4. MITOMYCIN C [Suspect]
     Active Substance: MITOMYCIN
     Indication: Procoagulant therapy
  5. TIMOLOL MALEATE [Concomitant]
     Active Substance: TIMOLOL MALEATE
     Indication: Open angle glaucoma
     Route: 061
  6. XALATAN [Concomitant]
     Active Substance: LATANOPROST
     Indication: Open angle glaucoma
     Route: 061
  7. PREDNISOLONE [Concomitant]
     Active Substance: PREDNISOLONE
     Indication: Hypotony maculopathy
     Dosage: 10 MILLIGRAM DAILY;
     Route: 048
  8. ISOPTO-ATROPINE [Concomitant]
     Indication: Product used for unknown indication
     Dosage: THREE TIMES A DAY
     Route: 061

REACTIONS (2)
  - Endophthalmitis [Recovering/Resolving]
  - Retinal haemorrhage [Unknown]
